FAERS Safety Report 4304828-8 (Version None)
Quarter: 2004Q1

REPORT INFORMATION
  Report Type: 
  Country: None (occurrence: None)
  Receive Date: 20040223
  Receipt Date: 20030131
  Transmission Date: 20041129
  Serious: Yes (Disabling)
  Sender: FDA-Public Use
  Company Number: TAP2002Q02745

PATIENT
  Age: 70 Year
  Sex: Male
  Weight: 114.76 kg

DRUGS (5)
  1. LUPRON DEPOT-3 [Suspect]
     Indication: PROSTATE CANCER
     Dosage: 22.5 MG, 1 IN 3 M, INTRAMUSCULAR
     Route: 030
     Dates: start: 19930101, end: 20030101
  2. MESTINON [Concomitant]
  3. MULTIVITAMIN [Concomitant]
  4. CALTRATE (CALCIUM CARBONATE) [Concomitant]
  5. VITAMIN C (ASCORBIC ACID) [Concomitant]

REACTIONS (4)
  - ASTHENIA [None]
  - EYELID PTOSIS [None]
  - MUSCLE CRAMP [None]
  - NEUROPATHY PERIPHERAL [None]
